FAERS Safety Report 24108313 (Version 1)
Quarter: 2024Q3

REPORT INFORMATION
  Report Type: Spontaneous
  Country: JP (occurrence: JP)
  Receive Date: 20240718
  Receipt Date: 20240718
  Transmission Date: 20241016
  Serious: Yes (Other)
  Sender: ACCORD
  Company Number: JP-Accord-434856

PATIENT
  Age: 4 Decade
  Sex: Female

DRUGS (3)
  1. METHOTREXATE [Suspect]
     Active Substance: METHOTREXATE
     Indication: Central nervous system lymphoma
     Dosage: HIGH DOSE
  2. METHOTREXATE [Suspect]
     Active Substance: METHOTREXATE
     Indication: Diffuse large B-cell lymphoma
     Dosage: HIGH DOSE
  3. METHOTREXATE [Suspect]
     Active Substance: METHOTREXATE
     Indication: Disease recurrence
     Dosage: HIGH DOSE

REACTIONS (3)
  - Renal tubular necrosis [Recovered/Resolved]
  - Renal impairment [Recovered/Resolved]
  - Chemotherapeutic drug level increased [Unknown]
